FAERS Safety Report 7472561-X (Version None)
Quarter: 2011Q2

REPORT INFORMATION
  Report Type: 
  Country: None (occurrence: None)
  Receive Date: 20110511
  Receipt Date: 20110427
  Transmission Date: 20111010
  Serious: No
  Sender: FDA-Public Use
  Company Number: US-B.I. PHARMACEUTICALS,INC./RIDGEFIELD-2011-BP-11954BP

PATIENT
  Age: 87 Year
  Sex: Male

DRUGS (8)
  1. NORVASC [Concomitant]
     Indication: HYPERTENSION
  2. ALTACE [Concomitant]
     Indication: HYPERTENSION
  3. PRADAXA [Suspect]
     Dosage: 300 MG
     Route: 048
     Dates: start: 20110201
  4. KLOR-CON [Concomitant]
     Indication: BLOOD POTASSIUM DECREASED
  5. CARVEDILOL [Concomitant]
     Indication: HYPERTENSION
  6. WELLBUTRIN [Concomitant]
  7. LEVOTHYROXINE SODIUM [Concomitant]
     Indication: HYPOTHYROIDISM
  8. LIPITOR [Concomitant]
     Indication: BLOOD CHOLESTEROL INCREASED

REACTIONS (3)
  - ASTHENIA [None]
  - HYPOTENSION [None]
  - NERVOUSNESS [None]
